FAERS Safety Report 4993412-9 (Version None)
Quarter: 2006Q2

REPORT INFORMATION
  Report Type: 
  Country: None (occurrence: None)
  Receive Date: 20060504
  Receipt Date: 20060504
  Transmission Date: 20061013
  Serious: Yes (Life-Threatening)
  Sender: FDA-Public Use
  Company Number: None

PATIENT
  Age: 47 Year
  Sex: Male
  Weight: 106 kg

DRUGS (1)
  1. ZOSYN [Suspect]
     Indication: LIVER ABSCESS
     Dosage: 4.5 GRAMS IV Q 6 HRS
     Route: 042
     Dates: start: 20060407

REACTIONS (1)
  - LEUKOPENIA [None]
